FAERS Safety Report 12161807 (Version 1)
Quarter: 2016Q1

REPORT INFORMATION
  Report Type: Spontaneous
  Country: US (occurrence: US)
  Receive Date: 20160309
  Receipt Date: 20160309
  Transmission Date: 20160526
  Serious: No
  Sender: FDA-Public Use
  Company Number: US-HORIZON-PEN-0087-2016

PATIENT
  Age: 71 Year
  Sex: Female

DRUGS (1)
  1. PENNSAID [Suspect]
     Active Substance: DICLOFENAC SODIUM
     Indication: BACK DISORDER
     Dosage: 1 SAMPLE PACKET BID
     Dates: start: 20160229

REACTIONS (3)
  - Drug dose omission [Not Recovered/Not Resolved]
  - Off label use [Recovered/Resolved]
  - Fall [Recovered/Resolved]

NARRATIVE: CASE EVENT DATE: 20160229
